FAERS Safety Report 7471570-4 (Version None)
Quarter: 2011Q2

REPORT INFORMATION
  Report Type: 
  Country: None (occurrence: None)
  Receive Date: 20110511
  Receipt Date: 20110215
  Transmission Date: 20111010
  Serious: Yes (Hospitalization)
  Sender: FDA-Public Use
  Company Number: US-BAYER-200929039NA

PATIENT
  Age: 40 Year
  Sex: Female
  Weight: 75 kg

DRUGS (13)
  1. AMOXICILLIN [Concomitant]
     Dosage: 12-FEB-2007
     Route: 065
  2. FOLIC ACID [Concomitant]
  3. ACETAMINOPHEN [Concomitant]
  4. PENICILLIN VK [Concomitant]
     Route: 065
     Dates: start: 20060711, end: 20061005
  5. ZITHROMAX [Concomitant]
  6. MOTRIN [Concomitant]
  7. IBUPROFEN [Concomitant]
     Dosage: 03-APR-2007
     Route: 065
  8. HYDROCODONE BITARTRATE AND ACETAMINOPHEN [Concomitant]
     Dosage: 5/500. 04-APR-2007
     Route: 065
  9. CALNATE [Concomitant]
  10. YAZ [Suspect]
     Indication: CONTRACEPTION
     Dosage: UNK UNK, UNK
     Route: 048
     Dates: start: 20070501, end: 20071001
  11. PROPOXYPHENE HYDROCHLORIDE [Concomitant]
     Route: 065
     Dates: start: 20060207, end: 20070403
  12. ANALGESICS [Concomitant]
  13. NIFEDIPINE [Concomitant]
     Dosage: 03-APR-2007
     Route: 065

REACTIONS (5)
  - PAIN [None]
  - MUSCLE STRAIN [None]
  - ARTHRALGIA [None]
  - MENTAL DISORDER [None]
  - DEEP VEIN THROMBOSIS [None]
